FAERS Safety Report 5520573-5 (Version None)
Quarter: 2007Q4

REPORT INFORMATION
  Report Type: 
  Country: None (occurrence: None)
  Receive Date: 20071119
  Receipt Date: 20071108
  Transmission Date: 20080405
  Serious: Yes (Death, Hospitalization)
  Sender: FDA-Public Use
  Company Number: US-PFIZER INC-2007064690

PATIENT
  Sex: Male
  Weight: 79.4 kg

DRUGS (11)
  1. MARAVIROC [Suspect]
     Indication: HIV TEST POSITIVE
     Route: 048
  2. CLOPIDOGREL [Concomitant]
     Route: 048
  3. OXYCODONE HCL [Concomitant]
     Route: 048
     Dates: start: 20070531
  4. MITOMYCIN [Concomitant]
     Dates: start: 20070612
  5. KETOCONAZOLE [Concomitant]
     Dosage: TEXT:2%
     Route: 061
     Dates: start: 20070330
  6. CARVEDILOL [Concomitant]
     Route: 048
     Dates: start: 20070329
  7. PRAVASTATIN [Concomitant]
     Route: 048
     Dates: start: 20070329
  8. RAMIPRIL [Concomitant]
     Route: 048
     Dates: start: 20070329
  9. ACETYLSALICYLIC ACID SRT [Concomitant]
     Route: 048
     Dates: start: 20070329
  10. SEPTRA [Concomitant]
     Dosage: TEXT:1 DF
     Route: 048
     Dates: start: 20061201
  11. FLUOROURACIL [Concomitant]
     Dates: start: 20070601

REACTIONS (3)
  - CARDIAC ARREST [None]
  - HYPOTENSION [None]
  - THROMBOCYTOPENIA [None]
